FAERS Safety Report 15614726 (Version 2)
Quarter: 2020Q3

REPORT INFORMATION
  Report Type: Report from Study
  Country: CA (occurrence: CA)
  Receive Date: 20181113
  Receipt Date: 20200429
  Transmission Date: 20201105
  Serious: Yes (Hospitalization)
  Sender: FDA-Public Use
  Company Number: CA-ASTRAZENECA-2018SF27297

PATIENT
  Age: 76 Year
  Sex: Male

DRUGS (14)
  1. DURVALUMAB. [Suspect]
     Active Substance: DURVALUMAB
     Indication: GENITOURINARY MELANOMA
     Route: 042
     Dates: start: 20180608
  2. ATORVASTATIN [Concomitant]
     Active Substance: ATORVASTATIN
     Dates: start: 2014
  3. ZOPICLONE [Concomitant]
     Active Substance: ZOPICLONE
     Dates: start: 2000
  4. SENOKOT [Concomitant]
     Active Substance: SENNOSIDES
     Dates: start: 20180627
  5. SYNTHROID [Concomitant]
     Active Substance: LEVOTHYROXINE SODIUM
     Dates: start: 20180830
  6. COVERSYL [Concomitant]
     Active Substance: PERINDOPRIL
     Dates: start: 2014
  7. IBUPROFEN. [Concomitant]
     Active Substance: IBUPROFEN
     Dates: start: 20180620
  8. OMEGA 3 [Concomitant]
     Active Substance: OMEGA-3 FATTY ACIDS
     Dates: start: 2008
  9. TYLENOL [Concomitant]
     Active Substance: ACETAMINOPHEN
     Dates: start: 20180627
  10. TREMELIMUMAB. [Suspect]
     Active Substance: TREMELIMUMAB
     Indication: GENITOURINARY MELANOMA
     Route: 042
     Dates: start: 20180608
  11. PERINDOPRIL [Concomitant]
     Active Substance: PERINDOPRIL
     Dates: start: 201809
  12. VITAMIN D [Concomitant]
     Active Substance: VITAMIN D NOS
     Dates: start: 2008
  13. CALCIUM [Concomitant]
     Active Substance: CALCIUM
     Dates: start: 2008
  14. BISOPROLOL [Concomitant]
     Active Substance: BISOPROLOL
     Dates: start: 2014

REACTIONS (1)
  - Arthritis [Recovered/Resolved]

NARRATIVE: CASE EVENT DATE: 20180926
